FAERS Safety Report 8265489-9 (Version None)
Quarter: 2012Q2

REPORT INFORMATION
  Report Type: 
  Country: None (occurrence: None)
  Receive Date: 20120406
  Receipt Date: 20120403
  Transmission Date: 20120825
  Serious: Yes (Hospitalization, Other)
  Sender: FDA-Public Use
  Company Number: US-PFIZER INC-2012019151

PATIENT
  Sex: Female

DRUGS (8)
  1. IBUPROFEN [Concomitant]
     Indication: FIBROMYALGIA
     Dosage: UNK
     Dates: start: 20050101
  2. METRONIDAZOLE [Concomitant]
     Indication: ROSACEA
     Dosage: UNK
     Dates: start: 20090101, end: 20110101
  3. CHANTIX [Suspect]
     Indication: SMOKING CESSATION THERAPY
     Dosage: STARTING PACK AND 1 MG PACK
     Route: 048
     Dates: start: 20100304, end: 20100331
  4. FLEXERIL [Concomitant]
     Indication: FIBROMYALGIA
     Dosage: UNK
     Dates: start: 20090101, end: 20110101
  5. BENTYL [Concomitant]
     Indication: DIVERTICULITIS
     Dosage: UNK
  6. MIRALAX [Concomitant]
     Indication: DIVERTICULITIS
     Dosage: UNK
  7. ULTRAM [Concomitant]
     Indication: FIBROMYALGIA
     Dosage: UNK
     Dates: start: 20050101
  8. LACTULOSE [Concomitant]
     Indication: DIVERTICULITIS
     Dosage: UNK

REACTIONS (4)
  - DEPRESSION [None]
  - ANXIETY [None]
  - INTENTIONAL OVERDOSE [None]
  - SUICIDE ATTEMPT [None]
